FAERS Safety Report 6839204-7 (Version None)
Quarter: 2010Q3

REPORT INFORMATION
  Report Type: 
  Country: None (occurrence: None)
  Receive Date: 20100714
  Receipt Date: 20100702
  Transmission Date: 20110219
  Serious: Yes (Other)
  Sender: FDA-Public Use
  Company Number: US-WYE-H15964210

PATIENT
  Sex: Female

DRUGS (1)
  1. EFFEXOR [Suspect]
     Dosage: UNKNOWN

REACTIONS (4)
  - HYPOAESTHESIA [None]
  - PARAESTHESIA [None]
  - SPEECH DISORDER [None]
  - UNEVALUABLE EVENT [None]
